FAERS Safety Report 23810976 (Version 1)
Quarter: 2024Q2

REPORT INFORMATION
  Report Type: Spontaneous
  Country: US (occurrence: US)
  Receive Date: 20240502
  Receipt Date: 20240502
  Transmission Date: 20240716
  Serious: Yes (Other)
  Sender: FDA-Public Use
  Company Number: US-JNJFOC-20240467340

PATIENT
  Age: 76 Year
  Sex: Female

DRUGS (1)
  1. STELARA [Suspect]
     Active Substance: USTEKINUMAB
     Indication: Colitis ulcerative
     Route: 058

REACTIONS (5)
  - Colitis ulcerative [Recovering/Resolving]
  - Oropharyngeal pain [Unknown]
  - Rhinorrhoea [Unknown]
  - Skin irritation [Unknown]
  - Arthralgia [Unknown]
